FAERS Safety Report 7927691-2 (Version None)
Quarter: 2011Q4

REPORT INFORMATION
  Report Type: 
  Country: None (occurrence: None)
  Receive Date: 20111118
  Receipt Date: 20111107
  Transmission Date: 20120403
  Serious: Yes (Hospitalization, Other)
  Sender: FDA-Public Use
  Company Number: US-ACTELION-A-NJ2010-40522

PATIENT

DRUGS (2)
  1. VIAGRA [Concomitant]
  2. TRACLEER [Suspect]
     Indication: PULMONARY ARTERIAL HYPERTENSION
     Dosage: 10 MG, BID
     Route: 048
     Dates: start: 20100724

REACTIONS (4)
  - PULMONARY ARTERIAL HYPERTENSION [None]
  - MECHANICAL VENTILATION [None]
  - LUNG DISORDER [None]
  - URETHRAL REPAIR [None]
